FAERS Safety Report 16589707 (Version 1)
Quarter: 2019Q3

REPORT INFORMATION
  Report Type: Other
  Country: US (occurrence: US)
  Receive Date: 20190718
  Receipt Date: 20190718
  Transmission Date: 20191004
  Serious: Yes (Hospitalization)
  Sender: FDA-Public Use
  Company Number: US-SWEDISH ORPHAN BIOVITRUM-2019US0756

PATIENT
  Sex: Male

DRUGS (3)
  1. ULORIC [Concomitant]
     Active Substance: FEBUXOSTAT
  2. PROCRIT INJECTIONS [Concomitant]
  3. KINERET [Suspect]
     Active Substance: ANAKINRA
     Indication: GOUT
     Route: 058
     Dates: start: 201904

REACTIONS (2)
  - Infection [Unknown]
  - Memory impairment [Unknown]
